FAERS Safety Report 12294432 (Version 1)
Quarter: 2016Q2

REPORT INFORMATION
  Report Type: Spontaneous
  Country: US (occurrence: US)
  Receive Date: 20160422
  Receipt Date: 20160422
  Transmission Date: 20160815
  Serious: Yes (Life-Threatening, Hospitalization, Other)
  Sender: FDA-Public Use
  Company Number: US-PAR PHARMACEUTICAL COMPANIES-2015SCPR010510

PATIENT

DRUGS (1)
  1. CAPOTEN [Suspect]
     Active Substance: CAPTOPRIL
     Indication: SCLERODERMA RENAL CRISIS
     Dosage: UNK UNK, UNKNOWN
     Route: 065

REACTIONS (2)
  - Product use issue [Unknown]
  - Hypersensitivity [Recovering/Resolving]
